FAERS Safety Report 13693432 (Version 1)
Quarter: 2017Q2

REPORT INFORMATION
  Report Type: Spontaneous
  Country: US (occurrence: US)
  Receive Date: 20170626
  Receipt Date: 20170626
  Transmission Date: 20170830
  Serious: No
  Sender: FDA-Public Use
  Company Number: None

PATIENT
  Age: 26 Year
  Sex: Male
  Weight: 87.75 kg

DRUGS (1)
  1. VIVITROL [Suspect]
     Active Substance: NALTREXONE
     Indication: ALCOHOLISM
     Dosage: ?          OTHER DOSE:MG;OTHER FREQUENCY:Q MONTH;?
     Route: 030
     Dates: start: 20161003, end: 20170626

REACTIONS (5)
  - Fatigue [None]
  - Social anxiety disorder [None]
  - Aphasia [None]
  - Decreased interest [None]
  - Malaise [None]

NARRATIVE: CASE EVENT DATE: 20170626
